FAERS Safety Report 10468239 (Version 1)
Quarter: 2014Q3

REPORT INFORMATION
  Report Type: Spontaneous
  Country: IN (occurrence: IN)
  Receive Date: 20140922
  Receipt Date: 20140922
  Transmission Date: 20150326
  Serious: Yes (Life-Threatening, Hospitalization)
  Sender: FDA-Public Use
  Company Number: IN-ALLERGAN-1420284US

PATIENT
  Age: 20 Year
  Sex: Male

DRUGS (1)
  1. OFLOXACIN UNK [Suspect]
     Active Substance: OFLOXACIN
     Indication: HORDEOLUM
     Route: 061

REACTIONS (1)
  - Toxic epidermal necrolysis [Recovering/Resolving]
